FAERS Safety Report 4519497-1 (Version None)
Quarter: 2004Q4

REPORT INFORMATION
  Report Type: 
  Country: None (occurrence: None)
  Receive Date: 20041202
  Receipt Date: 20041119
  Transmission Date: 20050328
  Serious: Yes (Hospitalization)
  Sender: FDA-Public Use
  Company Number: 210583

PATIENT
  Age: 63 Year
  Sex: Male

DRUGS (2)
  1. RAPTIVA [Suspect]
     Indication: PSORIASIS
     Dosage: 0.75 ML, 1/WEEK; SUBCUTANEOUS
     Route: 058
     Dates: start: 20040801
  2. MEFENAMIC ACID [Concomitant]

REACTIONS (3)
  - CHEST PAIN [None]
  - FATIGUE [None]
  - INTERSTITIAL LUNG DISEASE [None]
